FAERS Safety Report 6034710-X (Version None)
Quarter: 2009Q1

REPORT INFORMATION
  Report Type: 
  Country: None (occurrence: None)
  Receive Date: 20090109
  Receipt Date: 20090109
  Transmission Date: 20090719
  Serious: Yes (Hospitalization)
  Sender: FDA-Public Use
  Company Number: None

PATIENT
  Sex: Female
  Weight: 75.8 kg

DRUGS (17)
  1. PREDNISONE [Suspect]
     Dosage: 210 MG
  2. RITUXIMAB (MOAHC2B8 ANTI CD20, CHIMERIC) [Suspect]
     Dosage: 668 MG
  3. VINCRISTINE SULFATE [Suspect]
     Dosage: 2 MG
  4. CYCLOPHOSPHAMIDE [Suspect]
     Dosage: 1335 MG
  5. DOXIL [Suspect]
     Dosage: 71 MG
  6. NEULASTA [Suspect]
     Dosage: 6 MG
  7. ACULAR [Concomitant]
  8. AMLODIPINE [Concomitant]
  9. APIDRA [Concomitant]
  10. AZOPT [Concomitant]
  11. CLONIDINE [Concomitant]
  12. LANTUS [Concomitant]
  13. LISINOPRIL [Concomitant]
  14. LOVASTATIN [Concomitant]
  15. METFORMIN [Concomitant]
  16. METOPROLOL TARTRATE [Concomitant]
  17. SYNTHROID [Concomitant]

REACTIONS (3)
  - BLOOD GLUCOSE INCREASED [None]
  - CONFUSIONAL STATE [None]
  - HALLUCINATION [None]
